FAERS Safety Report 22610987 (Version 3)
Quarter: 2023Q2

REPORT INFORMATION
  Report Type: Report from Study
  Country: BE (occurrence: BE)
  Receive Date: 20230616
  Receipt Date: 20230630
  Transmission Date: 20230721
  Serious: Yes (Hospitalization)
  Sender: FDA-Public Use
  Company Number: BE-GLAXOSMITHKLINE-BE2023GSK080608

PATIENT

DRUGS (3)
  1. DOSTARLIMAB [Suspect]
     Active Substance: DOSTARLIMAB
     Indication: Kaposi^s sarcoma
     Dosage: 500 MG(CYCLE 4)
     Route: 042
     Dates: start: 20230216, end: 20230420
  2. METFORMIN [Concomitant]
     Active Substance: METFORMIN HYDROCHLORIDE
     Indication: Type 2 diabetes mellitus
     Dosage: 850 MG, TID
     Route: 048
     Dates: start: 20230323
  3. DAFALGAN [Concomitant]
     Active Substance: ACETAMINOPHEN
     Indication: Kaposi^s sarcoma
     Dosage: 1 G, PRN
     Route: 048
     Dates: start: 20230504

REACTIONS (1)
  - Hepatitis [Not Recovered/Not Resolved]

NARRATIVE: CASE EVENT DATE: 20230601
